FAERS Safety Report 14974707 (Version 1)
Quarter: 2018Q2

REPORT INFORMATION
  Report Type: Spontaneous
  Country: US (occurrence: US)
  Receive Date: 20180515
  Receipt Date: 20180515
  Transmission Date: 20180711
  Serious: Yes (Hospitalization)
  Sender: FDA-Public Use
  Company Number: None

PATIENT
  Age: 51 Year
  Sex: Female

DRUGS (10)
  1. ATORVASTATIN [Concomitant]
     Active Substance: ATORVASTATIN
  2. MYCOPHENOLATE [Concomitant]
     Active Substance: MYCOPHENOLIC ACID
  3. PREDNISONE. [Concomitant]
     Active Substance: PREDNISONE
  4. VITAMIN D [Concomitant]
     Active Substance: CHOLECALCIFEROL
  5. GLIMEPERIDE [Concomitant]
     Active Substance: GLIMEPIRIDE
  6. TOUJEO [Concomitant]
     Active Substance: INSULIN GLARGINE
  7. PREMARIN [Concomitant]
     Active Substance: ESTROGENS, CONJUGATED
  8. TACROLIMUS. [Suspect]
     Active Substance: TACROLIMUS
     Indication: RENAL TRANSPLANT
     Route: 048
     Dates: start: 20160411
  9. FENOFIBRATE. [Concomitant]
     Active Substance: FENOFIBRATE
  10. HUMALOG [Concomitant]
     Active Substance: INSULIN LISPRO

REACTIONS (1)
  - Brain operation [None]

NARRATIVE: CASE EVENT DATE: 20180514
